FAERS Safety Report 10941429 (Version 2)
Quarter: 2015Q2

REPORT INFORMATION
  Report Type: Spontaneous
  Country: US (occurrence: US)
  Receive Date: 20150322
  Receipt Date: 20150524
  Transmission Date: 20150821
  Serious: No
  Sender: FDA-Public Use
  Company Number: US-JNJFOC-20141109479

PATIENT
  Age: 66 Year
  Sex: Female
  Weight: 92.99 kg

DRUGS (1)
  1. INVOKANA [Suspect]
     Active Substance: CANAGLIFLOZIN
     Indication: TYPE 2 DIABETES MELLITUS
     Route: 048
     Dates: start: 201408, end: 201411

REACTIONS (3)
  - Alopecia [Not Recovered/Not Resolved]
  - Cystitis [Unknown]
  - Urine output increased [Recovering/Resolving]

NARRATIVE: CASE EVENT DATE: 201409
